FAERS Safety Report 19268821 (Version 1)
Quarter: 2021Q2

REPORT INFORMATION
  Report Type: Spontaneous
  Country: US (occurrence: US)
  Receive Date: 20210517
  Receipt Date: 20210517
  Transmission Date: 20210717
  Serious: No
  Sender: FDA-Public Use
  Company Number: None

PATIENT
  Sex: Female
  Weight: 75.15 kg

DRUGS (15)
  1. MONTELUKAST [Concomitant]
     Active Substance: MONTELUKAST SODIUM
  2. VITAMIN D3 [Concomitant]
     Active Substance: CHOLECALCIFEROL
  3. ASPIRIN. [Concomitant]
     Active Substance: ASPIRIN
  4. ANASTRAZOLE [Concomitant]
     Active Substance: ANASTROZOLE
  5. LABETOLOL [Concomitant]
     Active Substance: LABETALOL HYDROCHLORIDE
  6. NIFEDIPINE. [Concomitant]
     Active Substance: NIFEDIPINE
  7. VERZENIO [Suspect]
     Active Substance: ABEMACICLIB
     Indication: BREAST CANCER
     Route: 048
     Dates: start: 20200224, end: 20210517
  8. ALBUTEROL. [Concomitant]
     Active Substance: ALBUTEROL
  9. FLOVENT DISKUS [Concomitant]
     Active Substance: FLUTICASONE PROPIONATE
  10. FOLIC ACID. [Concomitant]
     Active Substance: FOLIC ACID
  11. CARVEDILOL. [Concomitant]
     Active Substance: CARVEDILOL
  12. FAMOTIDINE. [Concomitant]
     Active Substance: FAMOTIDINE
  13. ISOSORBIDE DINATRATE [Concomitant]
  14. VALSARTAN. [Concomitant]
     Active Substance: VALSARTAN
  15. VITAMIN B1 [Concomitant]
     Active Substance: THIAMINE HYDROCHLORIDE

REACTIONS (1)
  - Renal disorder [None]
